FAERS Safety Report 9153469 (Version 1)
Quarter: 2013Q1

REPORT INFORMATION
  Report Type: Spontaneous
  Country: US (occurrence: None)
  Receive Date: 20130306
  Receipt Date: 20130306
  Transmission Date: 20140127
  Serious: Yes (Disabling)
  Sender: FDA-Public Use
  Company Number: None

PATIENT
  Age: 68 Year
  Sex: Female
  Weight: 55.79 kg

DRUGS (2)
  1. OXYBUTYNIN [Suspect]
     Indication: PAIN
     Dates: start: 20090716, end: 20120928
  2. TOVIAZ [Suspect]
     Indication: HYPERTONIC BLADDER
     Dates: start: 20100101, end: 20130301

REACTIONS (3)
  - Dry mouth [None]
  - Tooth disorder [None]
  - Dental caries [None]
